FAERS Safety Report 4908126-0 (Version None)
Quarter: 2006Q1

REPORT INFORMATION
  Report Type: 
  Country: None (occurrence: None)
  Receive Date: 20060210
  Receipt Date: 20060131
  Transmission Date: 20060701
  Serious: Yes (Other)
  Sender: FDA-Public Use
  Company Number: US-JNJFOC-20060200868

PATIENT
  Sex: Female

DRUGS (2)
  1. RISPERDAL [Suspect]
     Indication: SCHIZOPHRENIA
  2. ZYPREXA [Concomitant]

REACTIONS (3)
  - ANGLE CLOSURE GLAUCOMA [None]
  - DELUSION [None]
  - DEPRESSION [None]
